FAERS Safety Report 6232083-0 (Version None)
Quarter: 2009Q2

REPORT INFORMATION
  Report Type: 
  Country: None (occurrence: None)
  Receive Date: 20090616
  Receipt Date: 20090605
  Transmission Date: 20091009
  Serious: Yes (Hospitalization)
  Sender: FDA-Public Use
  Company Number: US-BAXTER-2009BH008988

PATIENT
  Age: 21 Month
  Sex: Female
  Weight: 14 kg

DRUGS (3)
  1. DIANEAL [Suspect]
     Indication: PERITONEAL DIALYSIS
     Route: 033
     Dates: start: 20070919
  2. EXTRANEAL [Suspect]
     Indication: PERITONEAL DIALYSIS
     Route: 033
     Dates: start: 20070919
  3. HEPARIN [Concomitant]
     Indication: FIBRIN
     Route: 033

REACTIONS (2)
  - CONSTIPATION [None]
  - UPPER RESPIRATORY TRACT INFECTION [None]
